FAERS Safety Report 10029585 (Version 1)
Quarter: 2014Q1

REPORT INFORMATION
  Report Type: Spontaneous
  Country: US (occurrence: None)
  Receive Date: 20140320
  Receipt Date: 20140320
  Transmission Date: 20141002
  Serious: Yes (Hospitalization, Other)
  Sender: FDA-Public Use
  Company Number: None

PATIENT
  Age: 4 Year
  Sex: Female
  Weight: 11.25 kg

DRUGS (1)
  1. EVAMIST [Suspect]

REACTIONS (5)
  - Alopecia [None]
  - Vulval oedema [None]
  - Nipple oedema [None]
  - Cushing^s syndrome [None]
  - Accidental exposure to product [None]
